FAERS Safety Report 7100149-9 (Version None)
Quarter: 2010Q4

REPORT INFORMATION
  Report Type: 
  Country: None (occurrence: None)
  Receive Date: 20101112
  Receipt Date: 20100521
  Transmission Date: 20110411
  Serious: No
  Sender: FDA-Public Use
  Company Number: A0861062A

PATIENT

DRUGS (2)
  1. CARVEDILOL [Suspect]
     Indication: BLOOD PRESSURE
     Route: 048
  2. SSRI [Concomitant]

REACTIONS (1)
  - BLOOD PRESSURE DECREASED [None]
